FAERS Safety Report 22822559 (Version 3)
Quarter: 2024Q3

REPORT INFORMATION
  Report Type: Spontaneous
  Country: JP (occurrence: JP)
  Receive Date: 20230815
  Receipt Date: 20240904
  Transmission Date: 20241017
  Serious: Yes (Hospitalization)
  Sender: AMGEN
  Company Number: JP-KYOWAKIRIN-2023AKK012309

PATIENT
  Age: 82 Year

DRUGS (1)
  1. ROMIPLOSTIM [Suspect]
     Active Substance: ROMIPLOSTIM
     Indication: Aplastic anaemia
     Dosage: 4 DOSAGE FORM, QWK, 4 VIALS ONCE EVERY WEEK
     Route: 058

REACTIONS (1)
  - Fracture [Unknown]
